FAERS Safety Report 18048941 (Version 1)
Quarter: 2020Q3

REPORT INFORMATION
  Report Type: Other
  Country: IT (occurrence: IT)
  Receive Date: 20200721
  Receipt Date: 20200721
  Transmission Date: 20201103
  Serious: Yes (Death, Other)
  Sender: FDA-Public Use
  Company Number: IT-ROCHE-2637717

PATIENT
  Age: 62 Year

DRUGS (9)
  1. TOCILIZUMAB. [Suspect]
     Active Substance: TOCILIZUMAB
     Indication: CYTOKINE STORM
  2. CHLOROQUINE. [Concomitant]
     Active Substance: CHLOROQUINE
     Indication: COVID-19
  3. DARUNAVIR [Concomitant]
     Active Substance: DARUNAVIR
     Indication: COVID-19
  4. N?ACETYLCYSTEINE [Concomitant]
     Active Substance: ACETYLCYSTEINE
  5. LOW MOLECULAR WEIGHT HEPARIN [Concomitant]
     Active Substance: UNSPECIFIED INGREDIENT
  6. VITAMIN C [Concomitant]
     Active Substance: ASCORBIC ACID
  7. TOCILIZUMAB. [Suspect]
     Active Substance: TOCILIZUMAB
     Indication: COVID-19
     Dosage: TWICE IN THE FIRST DAY
     Route: 042
  8. TOCILIZUMAB. [Suspect]
     Active Substance: TOCILIZUMAB
     Indication: ACUTE RESPIRATORY DISTRESS SYNDROME
  9. TOCILIZUMAB. [Suspect]
     Active Substance: TOCILIZUMAB
     Indication: ACUTE RESPIRATORY FAILURE

REACTIONS (4)
  - Hepatitis acute [Fatal]
  - Herpes simplex reactivation [Unknown]
  - Intentional product use issue [Unknown]
  - Off label use [Unknown]
